FAERS Safety Report 9115255 (Version 1)
Quarter: 2013Q1

REPORT INFORMATION
  Report Type: Spontaneous
  Country: US (occurrence: None)
  Receive Date: 20130220
  Receipt Date: 20130220
  Transmission Date: 20140127
  Serious: Yes (Hospitalization)
  Sender: FDA-Public Use
  Company Number: None

PATIENT
  Sex: Female
  Weight: 104.1 kg

DRUGS (2)
  1. IFOSFAMIDE [Suspect]
  2. PACLITAXEL (TAXOL) [Suspect]

REACTIONS (14)
  - Dehydration [None]
  - Renal failure acute [None]
  - Decreased appetite [None]
  - Hypophagia [None]
  - Vomiting [None]
  - Constipation [None]
  - Diarrhoea [None]
  - Asthenia [None]
  - Nausea [None]
  - Myalgia [None]
  - Hypotension [None]
  - Nephropathy toxic [None]
  - Renal tubular necrosis [None]
  - Dialysis [None]
